FAERS Safety Report 5186480-5 (Version None)
Quarter: 2006Q4

REPORT INFORMATION
  Report Type: 
  Country: None (occurrence: None)
  Receive Date: 20061220
  Receipt Date: 20061128
  Transmission Date: 20070319
  Serious: Yes (Hospitalization)
  Sender: FDA-Public Use
  Company Number: US-BOEHRINGER INGELHEIM PHARMACEUTICALS, INC.-2006-BP-13837BP

PATIENT
  Sex: Female

DRUGS (9)
  1. SPIRIVA [Suspect]
     Indication: CHRONIC OBSTRUCTIVE PULMONARY DISEASE
     Route: 055
     Dates: start: 20061116
  2. SPIRIVA [Suspect]
     Indication: ASTHMA
  3. SYNTHROID [Concomitant]
     Indication: HYPOTHYROIDISM
  4. PREDNISONE TAB [Concomitant]
     Indication: ASTHMA
  5. VASOTEC [Concomitant]
     Indication: MITRAL VALVE PROLAPSE
  6. LIPITOR [Concomitant]
     Indication: BLOOD CHOLESTEROL
  7. PLAVIX [Concomitant]
  8. ASMANEX TWISTHALER [Concomitant]
  9. NEXIUM [Concomitant]

REACTIONS (4)
  - CHEST PAIN [None]
  - POLLAKIURIA [None]
  - URETHRAL SPASM [None]
  - URINARY TRACT INFECTION [None]
